FAERS Safety Report 8622632-7 (Version None)
Quarter: 2012Q3

REPORT INFORMATION
  Report Type: 
  Country: None (occurrence: None)
  Receive Date: 20120827
  Receipt Date: 20120816
  Transmission Date: 20120928
  Serious: Yes (Other)
  Sender: FDA-Public Use
  Company Number: CA-JNJFOC-20120519059

PATIENT
  Sex: Male
  Weight: 56 kg

DRUGS (9)
  1. REMICADE [Suspect]
     Route: 042
     Dates: start: 20080521
  2. ATIVAN [Concomitant]
     Indication: SLEEP DISORDER
     Route: 065
  3. PREVACID [Concomitant]
     Route: 065
  4. REMICADE [Suspect]
     Route: 042
     Dates: start: 20080521
  5. REMICADE [Suspect]
     Indication: RHEUMATOID ARTHRITIS
     Route: 042
     Dates: start: 20120524
  6. ATIVAN [Concomitant]
     Indication: ANXIETY
     Route: 065
  7. ELAVIL [Concomitant]
     Route: 065
  8. CELEBREX [Concomitant]
     Indication: INFLAMMATION
     Route: 065
  9. REMICADE [Suspect]
     Indication: TENDONITIS
     Route: 042
     Dates: start: 20120524

REACTIONS (2)
  - PLEURISY [None]
  - ENDOCARDITIS [None]
